FAERS Safety Report 9928941 (Version 3)
Quarter: 2014Q1

REPORT INFORMATION
  Report Type: Spontaneous
  Country: DE (occurrence: DE)
  Receive Date: 20140227
  Receipt Date: 20140326
  Transmission Date: 20141002
  Serious: Yes (Hospitalization)
  Sender: FDA-Public Use
  Company Number: PHHY2013DE077716

PATIENT
  Sex: Female

DRUGS (2)
  1. GLIVEC [Suspect]
     Indication: CHRONIC MYELOID LEUKAEMIA
     Dosage: 400 MG, DAILY
     Route: 048
     Dates: start: 200906
  2. VITAMIN D [Concomitant]
     Indication: VITAMIN D DEFICIENCY
     Dosage: UNK UKN, UNK
     Route: 048

REACTIONS (4)
  - Acute stress disorder [Not Recovered/Not Resolved]
  - Stress [Recovering/Resolving]
  - Anxiety [Recovering/Resolving]
  - Herpes zoster [Recovered/Resolved]
